FAERS Safety Report 10074365 (Version 1)
Quarter: 2014Q2

REPORT INFORMATION
  Report Type: Spontaneous
  Country: US (occurrence: US)
  Receive Date: 20140411
  Receipt Date: 20140411
  Transmission Date: 20141212
  Serious: No
  Sender: FDA-Public Use
  Company Number: US-SANOFI-AVENTIS-2013SA057718

PATIENT
  Age: 40 Year
  Sex: Male

DRUGS (1)
  1. ALLEGRA D [Suspect]
     Indication: HYPERSENSITIVITY
     Dosage: TAKEN FROM: 1 WEEK
     Route: 048

REACTIONS (3)
  - Aggression [Recovered/Resolved]
  - Agitation [Recovered/Resolved]
  - Heart rate increased [Recovered/Resolved]
